FAERS Safety Report 5464883-9 (Version None)
Quarter: 2007Q3

REPORT INFORMATION
  Report Type: 
  Country: None (occurrence: None)
  Receive Date: 20070921
  Receipt Date: 20070910
  Transmission Date: 20080115
  Serious: Yes (Other)
  Sender: FDA-Public Use
  Company Number: US-PFIZER INC-2007076279

PATIENT
  Sex: Male
  Weight: 67.727 kg

DRUGS (7)
  1. LYRICA [Suspect]
     Indication: HYPOAESTHESIA
  2. LYRICA [Suspect]
     Indication: ESSENTIAL TREMOR
  3. METHAZOLAMIDE [Concomitant]
  4. VITAMINS [Concomitant]
  5. OXYBUTYNIN CHLORIDE [Concomitant]
     Route: 062
  6. RED YEAST RICE [Concomitant]
  7. MOTRIN [Concomitant]

REACTIONS (2)
  - TREMOR [None]
  - VISION BLURRED [None]
